FAERS Safety Report 24287449 (Version 2)
Quarter: 2024Q3

REPORT INFORMATION
  Report Type: Spontaneous
  Country: EG (occurrence: SA)
  Receive Date: 20240905
  Receipt Date: 20240906
  Transmission Date: 20241017
  Serious: Yes (Hospitalization, Other)
  Sender: MERCK
  Company Number: EG-009507513-2409SAU001622

PATIENT
  Age: 38 Year
  Sex: Male

DRUGS (3)
  1. KEYTRUDA [Suspect]
     Active Substance: PEMBROLIZUMAB
     Indication: Colorectal cancer
     Dosage: 400 MILLIGRAM, EVERY 6 WEEKS
     Route: 042
     Dates: start: 20230617, end: 20231214
  2. PANITUMUMAB [Concomitant]
     Active Substance: PANITUMUMAB
     Indication: Colorectal cancer
     Dosage: UNK
     Route: 065
     Dates: start: 2023, end: 202312
  3. ENCORAFENIB [Concomitant]
     Active Substance: ENCORAFENIB
     Indication: Colorectal cancer
     Dosage: UNK
     Dates: start: 2023, end: 202312

REACTIONS (4)
  - Malignant neoplasm progression [Not Recovered/Not Resolved]
  - Cancer surgery [Recovered/Resolved]
  - Drug resistance [Unknown]
  - Product use in unapproved indication [Unknown]

NARRATIVE: CASE EVENT DATE: 20230617
